FAERS Safety Report 16974240 (Version 1)
Quarter: 2019Q4

REPORT INFORMATION
  Report Type: Spontaneous
  Country: FR (occurrence: FR)
  Receive Date: 20191030
  Receipt Date: 20191030
  Transmission Date: 20200122
  Serious: Yes (Hospitalization)
  Sender: FDA-Public Use
  Company Number: FR-HTU-2019FR019727

PATIENT
  Age: 52 Year
  Sex: Female
  Weight: 63 kg

DRUGS (5)
  1. AKYNZEO [Suspect]
     Active Substance: NETUPITANT\PALONOSETRON HYDROCHLORIDE
     Indication: VOMITING
     Dosage: UNK UNK, PRN
     Route: 048
     Dates: start: 201909
  2. METHYLPREDNISOLONE MYLAN           /00049602/ [Suspect]
     Active Substance: METHYLPREDNISOLONE SODIUM SUCCINATE
     Indication: PREMEDICATION
     Dosage: 120 MILLIGRAM, UNKNOWN
     Route: 041
     Dates: start: 20190905, end: 20190905
  3. ONDANSETRON EG [Suspect]
     Active Substance: ONDANSETRON HYDROCHLORIDE
     Indication: PREMEDICATION
     Dosage: 8 MILLIGRAM, UNKNOWN
     Route: 048
     Dates: start: 20190905, end: 20190905
  4. CARBOPLATIN ACCORD [Suspect]
     Active Substance: CARBOPLATIN
     Indication: UTERINE CANCER
     Dosage: 700 MILLIGRAM, UNKNOWN
     Route: 041
     Dates: start: 20190905, end: 20190905
  5. PACLITAXEL TEVA [Suspect]
     Active Substance: PACLITAXEL
     Indication: UTERINE CANCER
     Dosage: 306 MILLIGRAM, UNKNOWN
     Route: 041
     Dates: start: 20190905, end: 20190905

REACTIONS (4)
  - Dyspnoea [Unknown]
  - Tachycardia [Unknown]
  - Chest pain [Unknown]
  - Hypotension [Unknown]

NARRATIVE: CASE EVENT DATE: 20190908
